FAERS Safety Report 24404796 (Version 1)
Quarter: 2024Q4

REPORT INFORMATION
  Report Type: Spontaneous
  Country: CN (occurrence: CN)
  Receive Date: 20241007
  Receipt Date: 20241007
  Transmission Date: 20250115
  Serious: No
  Sender: ROCHE
  Company Number: CN-ROCHE-3536329

PATIENT
  Age: 42 Year
  Sex: Female
  Weight: 58.0 kg

DRUGS (2)
  1. GAZYVA [Suspect]
     Active Substance: OBINUTUZUMAB
     Indication: Follicular lymphoma
     Route: 042
     Dates: start: 20240322, end: 20240322
  2. FOSAPREPITANT [Concomitant]
     Active Substance: FOSAPREPITANT

REACTIONS (3)
  - Nausea [Recovered/Resolved]
  - Temperature intolerance [Recovered/Resolved]
  - Chills [Recovering/Resolving]

NARRATIVE: CASE EVENT DATE: 20240322
